FAERS Safety Report 7655389-7 (Version None)
Quarter: 2011Q3

REPORT INFORMATION
  Report Type: 
  Country: None (occurrence: None)
  Receive Date: 20110804
  Receipt Date: 20110727
  Transmission Date: 20111222
  Serious: Yes (Other)
  Sender: FDA-Public Use
  Company Number: US-BAYER-201032945NA

PATIENT
  Age: 41 Year
  Sex: Female
  Weight: 103.86 kg

DRUGS (3)
  1. HYDROCHLOROTHIAZIDE [Concomitant]
     Dosage: DAILY DOSE 25 MG
     Route: 048
  2. LISINOPRIL [Concomitant]
     Dosage: DAILY DOSE 20 MG
     Route: 048
  3. YASMIN [Suspect]
     Dosage: UNK UNK, UNK
     Route: 048
     Dates: start: 20070101, end: 20080401

REACTIONS (1)
  - DEEP VEIN THROMBOSIS [None]
